FAERS Safety Report 25146464 (Version 1)
Quarter: 2025Q2

REPORT INFORMATION
  Report Type: Spontaneous
  Country: DE (occurrence: DE)
  Receive Date: 20250401
  Receipt Date: 20250401
  Transmission Date: 20250716
  Serious: Yes (Congenital Anomaly, Other)
  Sender: MYLAN
  Company Number: DE-EMB-M202310024-1

PATIENT
  Sex: Female
  Weight: 2.84 kg

DRUGS (80)
  1. VENLAFAXINE [Suspect]
     Active Substance: VENLAFAXINE HYDROCHLORIDE
     Indication: Panic disorder
     Dosage: 150 MILLIGRAM, QD
     Dates: start: 202306, end: 202402
  2. VENLAFAXINE [Suspect]
     Active Substance: VENLAFAXINE HYDROCHLORIDE
     Dosage: 150 MILLIGRAM, QD
     Dates: start: 202306, end: 202402
  3. VENLAFAXINE [Suspect]
     Active Substance: VENLAFAXINE HYDROCHLORIDE
     Dosage: 150 MILLIGRAM, QD
     Route: 064
     Dates: start: 202306, end: 202402
  4. VENLAFAXINE [Suspect]
     Active Substance: VENLAFAXINE HYDROCHLORIDE
     Dosage: 150 MILLIGRAM, QD
     Route: 064
     Dates: start: 202306, end: 202402
  5. VENLAFAXINE [Suspect]
     Active Substance: VENLAFAXINE HYDROCHLORIDE
     Dosage: 150 MILLIGRAM, QD
     Dates: start: 202306, end: 202402
  6. VENLAFAXINE [Suspect]
     Active Substance: VENLAFAXINE HYDROCHLORIDE
     Dosage: 150 MILLIGRAM, QD
     Dates: start: 202306, end: 202402
  7. VENLAFAXINE [Suspect]
     Active Substance: VENLAFAXINE HYDROCHLORIDE
     Dosage: 150 MILLIGRAM, QD
     Route: 064
     Dates: start: 202306, end: 202402
  8. VENLAFAXINE [Suspect]
     Active Substance: VENLAFAXINE HYDROCHLORIDE
     Dosage: 150 MILLIGRAM, QD
     Route: 064
     Dates: start: 202306, end: 202402
  9. PIPAMPERONE [Suspect]
     Active Substance: PIPAMPERONE
     Indication: Panic disorder
     Dates: start: 202306, end: 202307
  10. PIPAMPERONE [Suspect]
     Active Substance: PIPAMPERONE
     Dates: start: 202306, end: 202307
  11. PIPAMPERONE [Suspect]
     Active Substance: PIPAMPERONE
     Route: 064
     Dates: start: 202306, end: 202307
  12. PIPAMPERONE [Suspect]
     Active Substance: PIPAMPERONE
     Route: 064
     Dates: start: 202306, end: 202307
  13. PIPAMPERONE [Suspect]
     Active Substance: PIPAMPERONE
     Dates: start: 202306, end: 202307
  14. PIPAMPERONE [Suspect]
     Active Substance: PIPAMPERONE
     Dates: start: 202306, end: 202307
  15. PIPAMPERONE [Suspect]
     Active Substance: PIPAMPERONE
     Route: 064
     Dates: start: 202306, end: 202307
  16. PIPAMPERONE [Suspect]
     Active Substance: PIPAMPERONE
     Route: 064
     Dates: start: 202306, end: 202307
  17. TAVOR (LORAZEPAM) [Suspect]
     Active Substance: LORAZEPAM
     Indication: Panic disorder
     Dosage: QD (4-5 X 0.5 MG/D)
     Dates: start: 202307, end: 202401
  18. TAVOR (LORAZEPAM) [Suspect]
     Active Substance: LORAZEPAM
     Dosage: QD (4-5 X 0.5 MG/D)
     Dates: start: 202307, end: 202401
  19. TAVOR (LORAZEPAM) [Suspect]
     Active Substance: LORAZEPAM
     Dosage: QD (4-5 X 0.5 MG/D)
     Route: 064
     Dates: start: 202307, end: 202401
  20. TAVOR (LORAZEPAM) [Suspect]
     Active Substance: LORAZEPAM
     Dosage: QD (4-5 X 0.5 MG/D)
     Route: 064
     Dates: start: 202307, end: 202401
  21. TAVOR (LORAZEPAM) [Suspect]
     Active Substance: LORAZEPAM
     Dosage: QD (4-5 X 0.5 MG/D)
     Dates: start: 202307, end: 202401
  22. TAVOR (LORAZEPAM) [Suspect]
     Active Substance: LORAZEPAM
     Dosage: QD (4-5 X 0.5 MG/D)
     Dates: start: 202307, end: 202401
  23. TAVOR (LORAZEPAM) [Suspect]
     Active Substance: LORAZEPAM
     Dosage: QD (4-5 X 0.5 MG/D)
     Route: 064
     Dates: start: 202307, end: 202401
  24. TAVOR (LORAZEPAM) [Suspect]
     Active Substance: LORAZEPAM
     Dosage: QD (4-5 X 0.5 MG/D)
     Route: 064
     Dates: start: 202307, end: 202401
  25. AMOXICILLIN\CLAVULANATE POTASSIUM [Concomitant]
     Active Substance: AMOXICILLIN\CLAVULANATE POTASSIUM
     Indication: Pyelonephritis
     Dates: start: 202311, end: 202312
  26. AMOXICILLIN\CLAVULANATE POTASSIUM [Concomitant]
     Active Substance: AMOXICILLIN\CLAVULANATE POTASSIUM
     Dates: start: 202311, end: 202312
  27. AMOXICILLIN\CLAVULANATE POTASSIUM [Concomitant]
     Active Substance: AMOXICILLIN\CLAVULANATE POTASSIUM
     Route: 064
     Dates: start: 202311, end: 202312
  28. AMOXICILLIN\CLAVULANATE POTASSIUM [Concomitant]
     Active Substance: AMOXICILLIN\CLAVULANATE POTASSIUM
     Route: 064
     Dates: start: 202311, end: 202312
  29. AMOXICILLIN\CLAVULANATE POTASSIUM [Concomitant]
     Active Substance: AMOXICILLIN\CLAVULANATE POTASSIUM
     Dates: start: 202311, end: 202312
  30. AMOXICILLIN\CLAVULANATE POTASSIUM [Concomitant]
     Active Substance: AMOXICILLIN\CLAVULANATE POTASSIUM
     Dates: start: 202311, end: 202312
  31. AMOXICILLIN\CLAVULANATE POTASSIUM [Concomitant]
     Active Substance: AMOXICILLIN\CLAVULANATE POTASSIUM
     Route: 064
     Dates: start: 202311, end: 202312
  32. AMOXICILLIN\CLAVULANATE POTASSIUM [Concomitant]
     Active Substance: AMOXICILLIN\CLAVULANATE POTASSIUM
     Route: 064
     Dates: start: 202311, end: 202312
  33. MIRTAZAPINE [Concomitant]
     Active Substance: MIRTAZAPINE
     Indication: Sleep disorder
     Dosage: 7.5 MILLIGRAM, QD (UNK UNTIL WHEN, CONFLICTING REPORTS)
     Dates: start: 202311, end: 202311
  34. MIRTAZAPINE [Concomitant]
     Active Substance: MIRTAZAPINE
     Dosage: 7.5 MILLIGRAM, QD (UNK UNTIL WHEN, CONFLICTING REPORTS)
     Dates: start: 202311, end: 202311
  35. MIRTAZAPINE [Concomitant]
     Active Substance: MIRTAZAPINE
     Dosage: 7.5 MILLIGRAM, QD (UNK UNTIL WHEN, CONFLICTING REPORTS)
     Route: 064
     Dates: start: 202311, end: 202311
  36. MIRTAZAPINE [Concomitant]
     Active Substance: MIRTAZAPINE
     Dosage: 7.5 MILLIGRAM, QD (UNK UNTIL WHEN, CONFLICTING REPORTS)
     Route: 064
     Dates: start: 202311, end: 202311
  37. MIRTAZAPINE [Concomitant]
     Active Substance: MIRTAZAPINE
     Dosage: 7.5 MILLIGRAM, QD (UNK UNTIL WHEN, CONFLICTING REPORTS)
     Dates: start: 202311, end: 202311
  38. MIRTAZAPINE [Concomitant]
     Active Substance: MIRTAZAPINE
     Dosage: 7.5 MILLIGRAM, QD (UNK UNTIL WHEN, CONFLICTING REPORTS)
     Dates: start: 202311, end: 202311
  39. MIRTAZAPINE [Concomitant]
     Active Substance: MIRTAZAPINE
     Dosage: 7.5 MILLIGRAM, QD (UNK UNTIL WHEN, CONFLICTING REPORTS)
     Route: 064
     Dates: start: 202311, end: 202311
  40. MIRTAZAPINE [Concomitant]
     Active Substance: MIRTAZAPINE
     Dosage: 7.5 MILLIGRAM, QD (UNK UNTIL WHEN, CONFLICTING REPORTS)
     Route: 064
     Dates: start: 202311, end: 202311
  41. UNSPECIFIED INGREDIENT [Concomitant]
     Active Substance: UNSPECIFIED INGREDIENT
     Indication: Pyelonephritis
  42. UNSPECIFIED INGREDIENT [Concomitant]
     Active Substance: UNSPECIFIED INGREDIENT
  43. UNSPECIFIED INGREDIENT [Concomitant]
     Active Substance: UNSPECIFIED INGREDIENT
     Route: 064
  44. UNSPECIFIED INGREDIENT [Concomitant]
     Active Substance: UNSPECIFIED INGREDIENT
     Route: 064
  45. UNSPECIFIED INGREDIENT [Concomitant]
     Active Substance: UNSPECIFIED INGREDIENT
  46. UNSPECIFIED INGREDIENT [Concomitant]
     Active Substance: UNSPECIFIED INGREDIENT
  47. UNSPECIFIED INGREDIENT [Concomitant]
     Active Substance: UNSPECIFIED INGREDIENT
     Route: 064
  48. UNSPECIFIED INGREDIENT [Concomitant]
     Active Substance: UNSPECIFIED INGREDIENT
     Route: 064
  49. PROMETHAZINE [Concomitant]
     Active Substance: PROMETHAZINE HYDROCHLORIDE
     Indication: Panic disorder
     Dosage: 12.5 MILLIGRAM, QD
     Dates: start: 202401, end: 202402
  50. PROMETHAZINE [Concomitant]
     Active Substance: PROMETHAZINE HYDROCHLORIDE
     Dosage: 12.5 MILLIGRAM, QD
     Dates: start: 202401, end: 202402
  51. PROMETHAZINE [Concomitant]
     Active Substance: PROMETHAZINE HYDROCHLORIDE
     Dosage: 12.5 MILLIGRAM, QD
     Route: 064
     Dates: start: 202401, end: 202402
  52. PROMETHAZINE [Concomitant]
     Active Substance: PROMETHAZINE HYDROCHLORIDE
     Dosage: 12.5 MILLIGRAM, QD
     Route: 064
     Dates: start: 202401, end: 202402
  53. PROMETHAZINE [Concomitant]
     Active Substance: PROMETHAZINE HYDROCHLORIDE
     Dosage: 12.5 MILLIGRAM, QD
     Dates: start: 202401, end: 202402
  54. PROMETHAZINE [Concomitant]
     Active Substance: PROMETHAZINE HYDROCHLORIDE
     Dosage: 12.5 MILLIGRAM, QD
     Dates: start: 202401, end: 202402
  55. PROMETHAZINE [Concomitant]
     Active Substance: PROMETHAZINE HYDROCHLORIDE
     Dosage: 12.5 MILLIGRAM, QD
     Route: 064
     Dates: start: 202401, end: 202402
  56. PROMETHAZINE [Concomitant]
     Active Substance: PROMETHAZINE HYDROCHLORIDE
     Dosage: 12.5 MILLIGRAM, QD
     Route: 064
     Dates: start: 202401, end: 202402
  57. ACETAMINOPHEN [Concomitant]
     Active Substance: ACETAMINOPHEN
     Indication: Pyrexia
  58. ACETAMINOPHEN [Concomitant]
     Active Substance: ACETAMINOPHEN
  59. ACETAMINOPHEN [Concomitant]
     Active Substance: ACETAMINOPHEN
     Route: 064
  60. ACETAMINOPHEN [Concomitant]
     Active Substance: ACETAMINOPHEN
     Route: 064
  61. ACETAMINOPHEN [Concomitant]
     Active Substance: ACETAMINOPHEN
  62. ACETAMINOPHEN [Concomitant]
     Active Substance: ACETAMINOPHEN
  63. ACETAMINOPHEN [Concomitant]
     Active Substance: ACETAMINOPHEN
     Route: 064
  64. ACETAMINOPHEN [Concomitant]
     Active Substance: ACETAMINOPHEN
     Route: 064
  65. METOPROLOL [Concomitant]
     Active Substance: METOPROLOL
     Indication: Gestational hypertension
     Dates: start: 202402, end: 202402
  66. METOPROLOL [Concomitant]
     Active Substance: METOPROLOL
     Dates: start: 202402, end: 202402
  67. METOPROLOL [Concomitant]
     Active Substance: METOPROLOL
     Route: 064
     Dates: start: 202402, end: 202402
  68. METOPROLOL [Concomitant]
     Active Substance: METOPROLOL
     Route: 064
     Dates: start: 202402, end: 202402
  69. METOPROLOL [Concomitant]
     Active Substance: METOPROLOL
     Dates: start: 202402, end: 202402
  70. METOPROLOL [Concomitant]
     Active Substance: METOPROLOL
     Dates: start: 202402, end: 202402
  71. METOPROLOL [Concomitant]
     Active Substance: METOPROLOL
     Route: 064
     Dates: start: 202402, end: 202402
  72. METOPROLOL [Concomitant]
     Active Substance: METOPROLOL
     Route: 064
     Dates: start: 202402, end: 202402
  73. PENICILLIN [Concomitant]
     Active Substance: PENICILLIN
     Indication: Pyelonephritis
     Dates: start: 202311, end: 202311
  74. PENICILLIN [Concomitant]
     Active Substance: PENICILLIN
     Dates: start: 202311, end: 202311
  75. PENICILLIN [Concomitant]
     Active Substance: PENICILLIN
     Route: 064
     Dates: start: 202311, end: 202311
  76. PENICILLIN [Concomitant]
     Active Substance: PENICILLIN
     Route: 064
     Dates: start: 202311, end: 202311
  77. PENICILLIN [Concomitant]
     Active Substance: PENICILLIN
     Dates: start: 202311, end: 202311
  78. PENICILLIN [Concomitant]
     Active Substance: PENICILLIN
     Dates: start: 202311, end: 202311
  79. PENICILLIN [Concomitant]
     Active Substance: PENICILLIN
     Route: 064
     Dates: start: 202311, end: 202311
  80. PENICILLIN [Concomitant]
     Active Substance: PENICILLIN
     Route: 064
     Dates: start: 202311, end: 202311

REACTIONS (2)
  - Cardiac septal defect [Unknown]
  - Foetal exposure during pregnancy [Unknown]
